FAERS Safety Report 7469718-0 (Version None)
Quarter: 2011Q2

REPORT INFORMATION
  Report Type: 
  Country: None (occurrence: None)
  Receive Date: 20110510
  Receipt Date: 20110422
  Transmission Date: 20111010
  Serious: No
  Sender: FDA-Public Use
  Company Number: US-B.I. PHARMACEUTICALS,INC./RIDGEFIELD-2011-BP-11515BP

PATIENT
  Age: 76 Year
  Sex: Male

DRUGS (5)
  1. PRADAXA [Suspect]
     Indication: ATRIAL FIBRILLATION
     Dosage: 300 MG
     Route: 048
     Dates: start: 20110101
  2. LASIX [Concomitant]
     Indication: HYPERTENSION
     Dosage: 40 MG
     Route: 048
     Dates: start: 20090101
  3. DILTIAZEM [Concomitant]
     Indication: HEART RATE IRREGULAR
     Dosage: 360 MG
     Route: 048
     Dates: start: 20050101
  4. AZOR [Suspect]
     Indication: HYPERTENSION
     Dates: start: 20110101
  5. POTASSIUM CHLORIDE [Concomitant]
     Indication: HYPERTENSION
     Dates: start: 20090101

REACTIONS (1)
  - BACK PAIN [None]
